FAERS Safety Report 20886660 (Version 1)
Quarter: 2022Q2

REPORT INFORMATION
  Report Type: Spontaneous
  Country: CA (occurrence: None)
  Receive Date: 20220527
  Receipt Date: 20220527
  Transmission Date: 20220720
  Serious: Yes (Other)
  Sender: FDA-Public Use
  Company Number: CA-ROCHE-3098414

PATIENT
  Sex: Male

DRUGS (1)
  1. OCREVUS [Suspect]
     Active Substance: OCRELIZUMAB
     Indication: Primary progressive multiple sclerosis
     Dosage: REPORTER SOLELY KNOWS THE PATIENT RECEIVES OCREVUS EVERY 6 MONTHS
     Route: 065

REACTIONS (1)
  - Oesophageal carcinoma [Unknown]
